FAERS Safety Report 5232141-3 (Version None)
Quarter: 2007Q1

REPORT INFORMATION
  Report Type: 
  Country: None (occurrence: None)
  Receive Date: 20061201
  Receipt Date: 20060908
  Transmission Date: 20070707
  Serious: No
  Sender: FDA-Public Use
  Company Number: USA0510111391

PATIENT
  Age: 30 Year
  Sex: Female
  Weight: 62.3 kg

DRUGS (4)
  1. CYMBALTA [Suspect]
     Indication: DEPRESSION
     Dosage: 30 MG, ORAL
     Route: 048
     Dates: start: 20050627, end: 20051020
  2. WELLBUTRIN [Concomitant]
  3. TRAZODONE HCL [Concomitant]
  4. KLONOPIN [Concomitant]

REACTIONS (11)
  - ABDOMINAL DISTENSION [None]
  - ABORTION SPONTANEOUS [None]
  - AFFECT LABILITY [None]
  - DIZZINESS [None]
  - DRUG EXPOSURE DURING PREGNANCY [None]
  - FEELING ABNORMAL [None]
  - FLUID RETENTION [None]
  - IRRITABILITY [None]
  - MENSTRUATION IRREGULAR [None]
  - PREMENSTRUAL SYNDROME [None]
  - WEIGHT INCREASED [None]
